FAERS Safety Report 4442734-9 (Version None)
Quarter: 2004Q3

REPORT INFORMATION
  Report Type: 
  Country: None (occurrence: None)
  Receive Date: 20040903
  Receipt Date: 20040616
  Transmission Date: 20050211
  Serious: Yes (Other)
  Sender: FDA-Public Use
  Company Number: 2004UW12531

PATIENT
  Age: 58 Year
  Sex: Female
  Weight: 76.2043 kg

DRUGS (4)
  1. CRESTOR [Suspect]
     Indication: HYPERCHOLESTEROLAEMIA
     Dosage: 10 MG DAILY
  2. NPH INSULIN [Concomitant]
  3. PHENTERMININE [Concomitant]
  4. DIAZIDE [Concomitant]

REACTIONS (4)
  - ABDOMINAL DISCOMFORT [None]
  - CHILLS [None]
  - MUSCLE CRAMP [None]
  - NAUSEA [None]
